FAERS Safety Report 9465604 (Version 1)
Quarter: 2013Q3

REPORT INFORMATION
  Report Type: Spontaneous
  Country: DE (occurrence: DE)
  Receive Date: 20130820
  Receipt Date: 20130820
  Transmission Date: 20140515
  Serious: Yes (Other)
  Sender: FDA-Public Use
  Company Number: DE-EISAI INC-E2007-01281-SPO-DE

PATIENT
  Age: 20 Year
  Sex: Male
  Weight: 64 kg

DRUGS (4)
  1. FYCOMPA (PERAMPANEL) [Suspect]
     Indication: IDIOPATHIC GENERALISED EPILEPSY
     Route: 048
     Dates: start: 20130426, end: 20130429
  2. LAMOTRIGIN [Concomitant]
     Indication: IDIOPATHIC GENERALISED EPILEPSY
     Route: 048
     Dates: start: 2006
  3. BUCCOLAM [Concomitant]
     Indication: CONVULSION
     Dosage: 10 MG
     Route: 002
  4. TAVOR [Concomitant]
     Indication: CONVULSION
     Dosage: 1 MG
     Route: 060

REACTIONS (1)
  - Dystonia [Recovered/Resolved]
